FAERS Safety Report 8162862-4 (Version None)
Quarter: 2012Q1

REPORT INFORMATION
  Report Type: 
  Country: None (occurrence: None)
  Receive Date: 20120224
  Receipt Date: 20120221
  Transmission Date: 20120608
  Serious: Yes (Other)
  Sender: FDA-Public Use
  Company Number: US-PFIZER INC-2012046044

PATIENT
  Sex: Male
  Weight: 82.993 kg

DRUGS (8)
  1. LISINOPRIL [Concomitant]
     Indication: HYPERTENSION
     Dosage: UNK
  2. LYRICA [Suspect]
     Indication: NEUROPATHY PERIPHERAL
     Dosage: 200 MG, 2X/DAY
     Route: 048
     Dates: start: 20070101, end: 20111201
  3. LORTAB [Concomitant]
     Indication: BACK DISORDER
     Dosage: 10/500 MG, UNK
  4. LORTAB [Concomitant]
     Indication: LIMB DISCOMFORT
  5. CARVEDILOL [Concomitant]
     Indication: HYPERTENSION
     Dosage: 25 MG, UNK
  6. LYRICA [Suspect]
     Indication: BACK DISORDER
  7. FLEXERIL [Concomitant]
     Indication: MUSCLE SPASMS
     Dosage: UNK
  8. HYDROCHLOROTHIAZIDE [Concomitant]
     Indication: HYPERTENSION
     Dosage: UNK

REACTIONS (1)
  - HYPERTENSION [None]
